FAERS Safety Report 7056558-X (Version None)
Quarter: 2010Q4

REPORT INFORMATION
  Report Type: 
  Country: None (occurrence: None)
  Receive Date: 20101018
  Receipt Date: 20101013
  Transmission Date: 20110411
  Serious: Yes (Other)
  Sender: FDA-Public Use
  Company Number: TRP_07324_2010

PATIENT
  Age: 48 Year
  Sex: Female

DRUGS (2)
  1. RIBAVIRIN [Suspect]
     Indication: HEPATITIS C
     Dosage: 400 MG, DAILY ORAL
     Route: 048
  2. PEGINTERFERON ALFA-2A [Suspect]
     Indication: HEPATITIS C
     Dosage: 80 UG 1X/WEEK SUBCUTANEOUS
     Route: 058

REACTIONS (7)
  - ALOPECIA [None]
  - CUTANEOUS SARCOIDOSIS [None]
  - FACE OEDEMA [None]
  - HEPATIC ENZYME INCREASED [None]
  - PAPULE [None]
  - SKIN DISCOLOURATION [None]
  - ULCER [None]
